FAERS Safety Report 8283208 (Version 4)
Quarter: 2013Q1

REPORT INFORMATION
  Report Type: Spontaneous
  Country: US (occurrence: US)
  Receive Date: 20111209
  Receipt Date: 20130307
  Transmission Date: 20140127
  Serious: Yes (Hospitalization, Other)
  Sender: FDA-Public Use
  Company Number: US-ASTRAZENECA-2011SE62089

PATIENT
  Age: 64 Year
  Sex: Female
  Weight: 127 kg

DRUGS (14)
  1. NEXIUM [Suspect]
     Indication: GASTROOESOPHAGEAL REFLUX DISEASE
     Route: 048
  2. PRILOSEC [Suspect]
     Route: 048
  3. ONGLYZA [Concomitant]
  4. TOMA [Concomitant]
  5. VICON FORTE [Concomitant]
  6. VITAMINS [Concomitant]
  7. CYMBALTA [Concomitant]
  8. ALLOPURINOL [Concomitant]
  9. ZYLOPRIM [Concomitant]
  10. PLAVIX [Concomitant]
  11. SIMVASTATIN [Concomitant]
  12. ZOCOR [Concomitant]
  13. AMBIEN [Concomitant]
  14. LASIX [Concomitant]

REACTIONS (6)
  - Heart rate irregular [Unknown]
  - Poor peripheral circulation [Unknown]
  - Diabetes mellitus [Unknown]
  - Musculoskeletal disorder [Unknown]
  - Cardiac disorder [Unknown]
  - Off label use [Unknown]
